FAERS Safety Report 4980613-9 (Version None)
Quarter: 2006Q2

REPORT INFORMATION
  Report Type: 
  Country: None (occurrence: None)
  Receive Date: 20060424
  Receipt Date: 20050914
  Transmission Date: 20061013
  Serious: Yes (Hospitalization, Disabling)
  Sender: FDA-Public Use
  Company Number: US-MERCK-0509USA02124

PATIENT
  Age: 56 Year
  Sex: Female
  Weight: 81 kg

DRUGS (25)
  1. VIOXX [Suspect]
     Indication: RHEUMATOID ARTHRITIS
     Route: 048
     Dates: start: 19990101, end: 20040930
  2. VIOXX [Suspect]
     Indication: GOUT
     Route: 048
     Dates: start: 19990101, end: 20040930
  3. VITAMIN E [Concomitant]
     Route: 065
  4. VITAMIN D (UNSPECIFIED) [Concomitant]
     Route: 065
  5. VITAMIN B COMPLEX [Concomitant]
     Route: 065
  6. ASPIRIN [Concomitant]
     Route: 065
  7. ASPIRIN [Concomitant]
     Route: 065
     Dates: start: 20030101
  8. GASTROINTESTINAL PREPARATIONS (UNSPECIFIED) [Concomitant]
     Route: 065
  9. PROTONIX [Concomitant]
     Indication: DYSPEPSIA
     Route: 065
  10. NORVASC [Concomitant]
     Route: 065
  11. FOSINOPRIL SODIUM [Concomitant]
     Route: 065
  12. NOVOLOG [Concomitant]
     Route: 065
  13. HYDRODIURIL [Concomitant]
     Indication: HYPERTENSION
     Route: 048
  14. ZOCOR [Concomitant]
     Route: 065
     Dates: end: 20051201
  15. NIASPAN [Concomitant]
     Indication: BLOOD CHOLESTEROL
     Route: 065
  16. HYDROCODONE BITARTRATE [Concomitant]
     Route: 065
  17. NASACORT AQ [Concomitant]
     Route: 065
  18. ACTOS [Concomitant]
     Route: 065
  19. TRICOR [Concomitant]
     Route: 065
  20. CYMBALTA [Concomitant]
     Indication: DEPRESSION
     Route: 065
  21. VYTORIN [Concomitant]
     Indication: BLOOD CHOLESTEROL
     Route: 048
     Dates: start: 20050101
  22. PLAVIX [Concomitant]
     Indication: THROMBOSIS
     Route: 065
     Dates: start: 20030101
  23. CELEBREX [Concomitant]
     Indication: GOUT
     Route: 065
  24. CELEBREX [Concomitant]
     Indication: RHEUMATOID ARTHRITIS
     Route: 065
  25. LYRICA [Concomitant]
     Indication: NEUROPATHY
     Route: 065

REACTIONS (21)
  - CARDIAC FAILURE CONGESTIVE [None]
  - CARDIAC MURMUR [None]
  - DEEP VEIN THROMBOSIS [None]
  - DEPRESSION [None]
  - DIABETES MELLITUS [None]
  - DRUG HYPERSENSITIVITY [None]
  - DYSPEPSIA [None]
  - EMOTIONAL DISTRESS [None]
  - GASTROOESOPHAGEAL REFLUX DISEASE [None]
  - GOUT [None]
  - HEART DISEASE CONGENITAL [None]
  - HYPERTENSION [None]
  - NEOPLASM MALIGNANT [None]
  - NEPHROLITHIASIS [None]
  - NERVOUS SYSTEM DISORDER [None]
  - NEUROPATHY [None]
  - OBSTRUCTION [None]
  - OEDEMA PERIPHERAL [None]
  - PNEUMONIA LEGIONELLA [None]
  - THYROID DISORDER [None]
  - TRANSIENT ISCHAEMIC ATTACK [None]
